FAERS Safety Report 10021423 (Version 1)
Quarter: 2014Q1

REPORT INFORMATION
  Report Type: Spontaneous
  Country: US (occurrence: US)
  Receive Date: 20140319
  Receipt Date: 20140319
  Transmission Date: 20141002
  Serious: No
  Sender: FDA-Public Use
  Company Number: US-009507513-1403USA008770

PATIENT
  Sex: Male

DRUGS (13)
  1. TIMOLOL MALEATE [Suspect]
     Indication: EYE INFECTION
     Dosage: UNK
  2. NASONEX [Suspect]
     Indication: PRODUCT USED FOR UNKNOWN INDICATION
     Dosage: UNK
  3. LISINOPRIL [Concomitant]
     Indication: PRODUCT USED FOR UNKNOWN INDICATION
     Dosage: UNK
  4. LEVOTHYROXINE SODIUM [Concomitant]
     Indication: PRODUCT USED FOR UNKNOWN INDICATION
     Dosage: UNK
  5. OFLOXACIN [Suspect]
     Indication: EYE INFECTION
     Dosage: UNK
  6. BRIMONIDINE TARTRATE [Suspect]
     Indication: EYE INFECTION
     Dosage: UNK
  7. TOBRADEX [Suspect]
     Indication: EYE INFECTION
     Dosage: UNK
  8. TRAVATAN [Suspect]
     Indication: EYE INFECTION
     Dosage: UNK
  9. AZOPT [Suspect]
     Indication: EYE INFECTION
     Dosage: UNK
  10. PATADAY [Suspect]
     Indication: EYE INFECTION
     Dosage: UNK
  11. DEXAMETHASONE (+) TOBRAMYCIN [Suspect]
     Indication: EYE INFECTION
     Dosage: UNK
  12. ALPHAGAN P [Suspect]
     Indication: EYE INFECTION
     Dosage: UNK
  13. BRIMONIDINE TARTRATE [Suspect]
     Indication: EYE INFECTION
     Dosage: UNK

REACTIONS (2)
  - Drug ineffective [Unknown]
  - Off label use [Unknown]
